FAERS Safety Report 21480404 (Version 1)
Quarter: 2022Q4

REPORT INFORMATION
  Report Type: Spontaneous
  Country: DE (occurrence: DE)
  Receive Date: 20221019
  Receipt Date: 20221019
  Transmission Date: 20230112
  Serious: Yes (Hospitalization, Other)
  Sender: FDA-Public Use
  Company Number: DE-NOVARTISPH-NVSC2020DE052371

PATIENT
  Age: 90 Year
  Sex: Male

DRUGS (7)
  1. METOPROLOL [Suspect]
     Active Substance: METOPROLOL
     Indication: Product used for unknown indication
     Dosage: 47.5 MG, Q12H (1-0-1-0 )
     Route: 065
  2. DIGITOXIN [Suspect]
     Active Substance: DIGITOXIN
     Indication: Product used for unknown indication
     Dosage: 0.05 MG, QD, 1-0-0-0
     Route: 065
  3. TORSEMIDE [Concomitant]
     Active Substance: TORSEMIDE
     Indication: Product used for unknown indication
     Dosage: 10 MG, QD, 1-0-0-0
     Route: 065
  4. KALINOR [Concomitant]
     Indication: Product used for unknown indication
     Dosage: UNK, QD (NK MG/2 TAKE, 1-0-0-0)
     Route: 065
  5. TAMSULOSIN [Concomitant]
     Active Substance: TAMSULOSIN
     Indication: Product used for unknown indication
     Dosage: 0.4 MG, QD, 1-0-0-0
     Route: 065
  6. SERTRALINE HYDROCHLORIDE [Concomitant]
     Active Substance: SERTRALINE HYDROCHLORIDE
     Indication: Product used for unknown indication
     Dosage: 50 MG, QD (1-0-0-0)
     Route: 065
  7. EUTHYROX [Concomitant]
     Active Substance: LEVOTHYROXINE SODIUM
     Indication: Product used for unknown indication
     Dosage: 50 ?G, 1-0-0-0
     Route: 065

REACTIONS (2)
  - Syncope [Unknown]
  - Bradycardia [Unknown]

NARRATIVE: CASE EVENT DATE: 20190713
